FAERS Safety Report 9842326 (Version 1)
Quarter: 2013Q4

REPORT INFORMATION
  Report Type: Spontaneous
  Country: US (occurrence: None)
  Receive Date: 20131223
  Receipt Date: 20131223
  Transmission Date: 20140711
  Serious: Yes (Other)
  Sender: FDA-Public Use
  Company Number: 219870LEO

PATIENT
  Age: 78 Year
  Sex: Male

DRUGS (2)
  1. PICATO [Suspect]
     Indication: PRECANCEROUS CELLS PRESENT
     Route: 061
     Dates: start: 20121204, end: 20121206
  2. LOSARTAN (LOSARTAN) [Concomitant]

REACTIONS (3)
  - Application site exfoliation [None]
  - Application site dryness [None]
  - Application site erythema [None]
